FAERS Safety Report 5556090-6 (Version None)
Quarter: 2007Q4

REPORT INFORMATION
  Report Type: 
  Country: None (occurrence: None)
  Receive Date: 20071213
  Receipt Date: 20071206
  Transmission Date: 20080405
  Serious: Yes (Hospitalization)
  Sender: FDA-Public Use
  Company Number: PHBS2007JP19329

PATIENT
  Age: 60 Year
  Sex: Male
  Weight: 54 kg

DRUGS (4)
  1. ZOMETA [Suspect]
     Indication: METASTASES TO BONE
     Dosage: 4 MG, UNK
     Route: 042
     Dates: start: 20071107, end: 20071112
  2. CASODEX [Concomitant]
     Indication: PROSTATE CANCER
     Dosage: 80 MG, UNK
     Route: 048
     Dates: start: 20071010
  3. LOXONIN [Concomitant]
     Indication: PAIN
     Dosage: 180 MG, UNK
     Route: 048
     Dates: start: 20071003
  4. FAMOTIDINE [Concomitant]
     Indication: GASTRIC ULCER
     Dosage: 40 MG, UNK
     Route: 048
     Dates: start: 20071006

REACTIONS (4)
  - DIZZINESS [None]
  - HYPOAESTHESIA [None]
  - HYPOCALCAEMIA [None]
  - TETANY [None]
